FAERS Safety Report 5513770-6 (Version None)
Quarter: 2007Q4

REPORT INFORMATION
  Report Type: 
  Country: None (occurrence: None)
  Receive Date: 20071113
  Receipt Date: 20071104
  Transmission Date: 20080405
  Serious: Yes (Other)
  Sender: FDA-Public Use
  Company Number: PHEH2007US14420

PATIENT
  Sex: Female

DRUGS (3)
  1. TRILEPTAL [Suspect]
     Dosage: 1500 MG, QD
  2. TRILEPTAL [Suspect]
     Dosage: 1200 MG, QD
     Route: 048
     Dates: end: 20050101
  3. TRILEPTAL [Suspect]
     Dates: start: 19980101

REACTIONS (5)
  - LYMPHADENOPATHY [None]
  - PYREXIA [None]
  - SPLENIC RUPTURE [None]
  - SYNCOPE [None]
  - WHITE BLOOD CELL COUNT DECREASED [None]
